FAERS Safety Report 12548691 (Version 1)
Quarter: 2016Q3

REPORT INFORMATION
  Report Type: Spontaneous
  Country: US (occurrence: None)
  Receive Date: 20160711
  Receipt Date: 20160711
  Transmission Date: 20161109
  Serious: Yes (Other)
  Sender: FDA-Public Use
  Company Number: None

PATIENT
  Age: 35 Year
  Sex: Female
  Weight: 89.36 kg

DRUGS (1)
  1. ARMODAFINIL, 250MG [Suspect]
     Active Substance: ARMODAFINIL
     Indication: HYPERSOMNIA
     Route: 048
     Dates: start: 20160615, end: 20160623

REACTIONS (4)
  - Dyspnoea [None]
  - Rash [None]
  - Urticaria [None]
  - Pharyngeal oedema [None]

NARRATIVE: CASE EVENT DATE: 20160629
